FAERS Safety Report 5641322-6 (Version None)
Quarter: 2008Q1

REPORT INFORMATION
  Report Type: 
  Country: None (occurrence: None)
  Receive Date: 20080227
  Receipt Date: 20070522
  Transmission Date: 20080703
  Serious: No
  Sender: FDA-Public Use
  Company Number: A0652108A

PATIENT
  Age: 59 Year

DRUGS (1)
  1. NICORETTE [Suspect]

REACTIONS (2)
  - NAUSEA [None]
  - THROAT IRRITATION [None]
